FAERS Safety Report 8540696-6 (Version None)
Quarter: 2012Q3

REPORT INFORMATION
  Report Type: 
  Country: None (occurrence: None)
  Receive Date: 20120726
  Receipt Date: 20120717
  Transmission Date: 20120928
  Serious: Yes (Other)
  Sender: FDA-Public Use
  Company Number: US-JNJFOC-20120708497

PATIENT
  Sex: Female
  Weight: 62.6 kg

DRUGS (5)
  1. REMICADE [Suspect]
     Route: 042
     Dates: start: 20120705
  2. REMICADE [Suspect]
     Indication: CROHN'S DISEASE
     Dosage: STARTED AT LEAST 5 YEARS AGO
     Route: 042
     Dates: end: 20120101
  3. REMICADE [Suspect]
     Indication: RHEUMATOID ARTHRITIS
     Dosage: STARTED AT LEAST 5 YEARS AGO
     Route: 042
     Dates: end: 20120101
  4. REMICADE [Suspect]
     Route: 042
     Dates: start: 20120705
  5. METHOTREXATE [Suspect]
     Indication: RHEUMATOID ARTHRITIS
     Route: 065
     Dates: end: 20120101

REACTIONS (4)
  - CROHN'S DISEASE [None]
  - DRUG INEFFECTIVE [None]
  - HYPERTENSION [None]
  - RHEUMATOID NODULE [None]
